FAERS Safety Report 21194484 (Version 1)
Quarter: 2022Q3

REPORT INFORMATION
  Report Type: Spontaneous
  Country: BE (occurrence: BE)
  Receive Date: 20220810
  Receipt Date: 20220810
  Transmission Date: 20221027
  Serious: Yes (Hospitalization)
  Sender: FDA-Public Use
  Company Number: BY-CELGENE-BLR-20200503903

PATIENT
  Age: 65 Year
  Sex: Male
  Weight: 67 kg

DRUGS (8)
  1. DEXAMETHASONE [Suspect]
     Active Substance: DEXAMETHASONE
     Indication: Plasma cell myeloma
     Dosage: 40 MILLIGRAM
     Route: 048
     Dates: start: 20190625, end: 20200314
  2. LENALIDOMIDE [Suspect]
     Active Substance: LENALIDOMIDE
     Indication: Plasma cell myeloma
     Dosage: 5 MILLIGRAM, DOSE REDUCED
     Route: 048
     Dates: start: 20200616
  3. LENALIDOMIDE [Suspect]
     Active Substance: LENALIDOMIDE
     Dosage: 10 MILLIGRAM
     Route: 048
     Dates: start: 20190625, end: 20200323
  4. LENALIDOMIDE [Suspect]
     Active Substance: LENALIDOMIDE
     Dosage: 5 MILLIGRAM
     Route: 048
     Dates: start: 20200331, end: 20200504
  5. DARATUMUMAB [Suspect]
     Active Substance: DARATUMUMAB
     Indication: Plasma cell myeloma
     Dosage: FREQUENCY TEXT: NOT PROVIDED1800 MILLIGRAM
     Route: 058
     Dates: start: 20200616
  6. DARATUMUMAB [Suspect]
     Active Substance: DARATUMUMAB
     Dosage: FREQUENCY TEXT: NOT PROVIDED1800 MILLIGRAM
     Route: 058
     Dates: start: 20190625, end: 20200505
  7. BORTEZOMIB [Concomitant]
     Active Substance: BORTEZOMIB
     Indication: Plasma cell myeloma
     Dosage: FREQUENCY TEXT: NOT PROVIDED 2.6 MILLIGRAM
     Route: 058
     Dates: start: 20190625, end: 20200313
  8. IMODIUM [Concomitant]
     Active Substance: LOPERAMIDE HYDROCHLORIDE
     Indication: Diarrhoea
     Dosage: UNK
     Route: 065
     Dates: start: 20200501

REACTIONS (2)
  - Decreased appetite [Recovered/Resolved]
  - Asthenia [Recovered/Resolved]

NARRATIVE: CASE EVENT DATE: 20200503
